FAERS Safety Report 19980200 (Version 1)
Quarter: 2021Q4

REPORT INFORMATION
  Report Type: Report from Study
  Country: US (occurrence: US)
  Receive Date: 20211021
  Receipt Date: 20211021
  Transmission Date: 20220303
  Serious: Yes (Hospitalization, Other)
  Sender: FDA-Public Use
  Company Number: US-BRISTOL-MYERS SQUIBB COMPANY-BMS-2021-106994

PATIENT
  Age: 60 Year
  Sex: Male
  Weight: 75.4 kg

DRUGS (10)
  1. NIVOLUMAB [Suspect]
     Active Substance: NIVOLUMAB
     Indication: Oesophageal carcinoma
     Dosage: 240 MILLIGRAM, Q2WK
     Route: 042
     Dates: start: 20210915, end: 20210929
  2. LEUCOVORIN CALCIUM [Suspect]
     Active Substance: LEUCOVORIN CALCIUM
     Indication: Oesophageal carcinoma
     Dosage: 800 MILLIGRAM, Q2WK
     Route: 042
     Dates: start: 20210915, end: 20210929
  3. FLUOROURACIL [Suspect]
     Active Substance: FLUOROURACIL
     Indication: Oesophageal carcinoma
     Dosage: 835 MILLIGRAM, Q2WK
     Route: 042
     Dates: start: 20210915, end: 20210929
  4. FLUOROURACIL [Suspect]
     Active Substance: FLUOROURACIL
     Dosage: 5.015 MG OVER 46 HOURS
     Route: 042
  5. OXALIPLATIN [Suspect]
     Active Substance: OXALIPLATIN
     Indication: Oesophageal carcinoma
     Dosage: 177.65 MILLIGRAM, Q2WK
     Route: 042
     Dates: start: 20210915, end: 20210929
  6. FAMOTIDINE [Concomitant]
     Active Substance: FAMOTIDINE
     Indication: Product used for unknown indication
     Dosage: 20 MILLIGRAM, BID
     Route: 065
  7. OSMOLITE [Concomitant]
     Indication: Product used for unknown indication
     Dosage: NUTRITIONAL SUPPLEMENT (OSMOLITE 1.5 CAL) 0.06 GRAM-1.5 KCAL/ML LIQUID
     Route: 065
  8. ZOFRAN [Concomitant]
     Active Substance: ONDANSETRON HYDROCHLORIDE
     Indication: Product used for unknown indication
     Dosage: 8 MILLIGRAM, Q8H, PRN
     Route: 065
  9. COMPAZINE [Concomitant]
     Active Substance: PROCHLORPERAZINE MALEATE
     Indication: Product used for unknown indication
     Dosage: 10 MILLIGRAM, Q6H, PRN
     Route: 065
  10. PROPRANOLOL HYDROCHLORIDE [Concomitant]
     Active Substance: PROPRANOLOL HYDROCHLORIDE
     Indication: Product used for unknown indication
     Dosage: 10 MILLIGRAM, BID
     Route: 065

REACTIONS (1)
  - Metabolic disorder [Not Recovered/Not Resolved]

NARRATIVE: CASE EVENT DATE: 20211013
